FAERS Safety Report 5860271-1 (Version None)
Quarter: 2008Q3

REPORT INFORMATION
  Report Type: 
  Country: None (occurrence: None)
  Receive Date: 20080827
  Receipt Date: 20070816
  Transmission Date: 20090109
  Serious: No
  Sender: FDA-Public Use
  Company Number: US-ABBOTT-07P-163-0377958-00

PATIENT
  Sex: Female

DRUGS (4)
  1. COATED PDS [Suspect]
     Indication: HIGH DENSITY LIPOPROTEIN
     Route: 048
     Dates: start: 20070814, end: 20070815
  2. COATED PDS [Suspect]
     Indication: BLOOD CHOLESTEROL
  3. AMITRIPTYLINE HCL [Concomitant]
     Indication: MIGRAINE
  4. FIORINAL [Concomitant]
     Indication: MIGRAINE

REACTIONS (1)
  - MIGRAINE [None]
